FAERS Safety Report 5418171-7 (Version None)
Quarter: 2007Q3

REPORT INFORMATION
  Report Type: 
  Country: None (occurrence: None)
  Receive Date: 20070817
  Receipt Date: 20070807
  Transmission Date: 20080115
  Serious: Yes (Death, Hospitalization)
  Sender: FDA-Public Use
  Company Number: DE-TYCO HEALTHCARE/MALLINCKRODT-T200700533

PATIENT

DRUGS (7)
  1. OPTIRAY 300 [Suspect]
     Indication: COMPUTERISED TOMOGRAM
     Dosage: 100 ML, SINGLE
     Route: 042
     Dates: start: 20070502, end: 20070502
  2. PENTAERYTHRITOL TETRANITRATE [Concomitant]
  3. TOREM                              /01036501/ [Concomitant]
  4. NOVALGIN                           /00039501/ [Concomitant]
  5. CALCIUM CHLORIDE [Concomitant]
  6. ROCEPHIN                           /00672201/ [Concomitant]
  7. MAGNESIUM SULFATE [Concomitant]

REACTIONS (3)
  - PNEUMONIA [None]
  - RENAL FAILURE ACUTE [None]
  - RESPIRATORY FAILURE [None]
